FAERS Safety Report 5063484-4 (Version None)
Quarter: 2006Q3

REPORT INFORMATION
  Report Type: 
  Country: None (occurrence: None)
  Receive Date: 20060727
  Receipt Date: 20060629
  Transmission Date: 20061208
  Serious: Yes (Life-Threatening, Hospitalization)
  Sender: FDA-Public Use
  Company Number: FR-AVENTIS-200612364FR

PATIENT
  Age: 74 Year
  Sex: Male
  Weight: 59 kg

DRUGS (6)
  1. TAXOTERE [Suspect]
     Indication: BRONCHIAL CARCINOMA
     Route: 042
     Dates: start: 20060517, end: 20060517
  2. CISPLATIN [Suspect]
     Indication: BRONCHIAL CARCINOMA
     Route: 042
     Dates: start: 20060517, end: 20060517
  3. RADIOTHERAPY [Suspect]
     Indication: BRONCHIAL CARCINOMA
  4. MONO-TILDIEM [Concomitant]
     Route: 048
  5. CORVASAL [Concomitant]
     Route: 048
  6. ASPIRIN [Concomitant]
     Route: 048

REACTIONS (1)
  - CEREBROVASCULAR ACCIDENT [None]
